FAERS Safety Report 9547110 (Version 1)
Quarter: 2013Q2

REPORT INFORMATION
  Report Type: Spontaneous
  Country: US (occurrence: None)
  Receive Date: 20130524
  Receipt Date: 20130524
  Transmission Date: 20140414
  Serious: No
  Sender: FDA-Public Use
  Company Number: PHEH2012US024449

PATIENT
  Sex: Male
  Weight: 102 kg

DRUGS (3)
  1. GILENYA (FINGOLIMOD) CAPSULE, 0.5MG [Suspect]
     Route: 048
  2. XANAX (ALPRAZOLAM) TABLET [Concomitant]
  3. VITAMIN C ACERAOLA (ASCORBIC ACID, MALPIGHIA GLABRA) [Concomitant]

REACTIONS (1)
  - Nausea [None]
